FAERS Safety Report 7965252-X (Version None)
Quarter: 2011Q4

REPORT INFORMATION
  Report Type: 
  Country: None (occurrence: None)
  Receive Date: 20111208
  Receipt Date: 20111204
  Transmission Date: 20120403
  Serious: No
  Sender: FDA-Public Use
  Company Number: US-BAYER-2011-117223

PATIENT

DRUGS (4)
  1. ACETAMINOPHEN [Concomitant]
  2. IBUPROFEN [Concomitant]
  3. ALEVE (CAPLET) [Suspect]
     Route: 048
  4. IBUPROFEN (ADVIL) [Concomitant]

REACTIONS (1)
  - NO ADVERSE EVENT [None]
